FAERS Safety Report 6024189-6 (Version None)
Quarter: 2008Q4

REPORT INFORMATION
  Report Type: 
  Country: None (occurrence: None)
  Receive Date: 20081224
  Receipt Date: 20081216
  Transmission Date: 20090506
  Serious: Yes (Hospitalization)
  Sender: FDA-Public Use
  Company Number: US025182

PATIENT
  Age: 54 Year
  Sex: Female

DRUGS (3)
  1. PROVIGIL [Suspect]
     Dosage: ORAL
     Route: 048
     Dates: end: 20080101
  2. TYSABRI [Concomitant]
  3. AVONEX [Concomitant]

REACTIONS (3)
  - CARDIAC ARREST [None]
  - MYOCARDIAL INFARCTION [None]
  - VASOSPASM [None]
